FAERS Safety Report 16576557 (Version 1)
Quarter: 2019Q3

REPORT INFORMATION
  Report Type: Spontaneous
  Country: US (occurrence: US)
  Receive Date: 20190716
  Receipt Date: 20190716
  Transmission Date: 20191004
  Serious: No
  Sender: FDA-Public Use
  Company Number: US-GLAXOSMITHKLINE-US2019126987

PATIENT
  Age: 76 Year
  Sex: Male

DRUGS (1)
  1. BREO ELLIPTA [Suspect]
     Active Substance: FLUTICASONE FUROATE\VILANTEROL TRIFENATATE
     Indication: INTERSTITIAL LUNG DISEASE
     Dosage: 2 PUFF(S), QD
     Route: 055

REACTIONS (4)
  - Product use in unapproved indication [Unknown]
  - Prescribed overdose [Unknown]
  - Product label confusion [Unknown]
  - Off label use [Unknown]

NARRATIVE: CASE EVENT DATE: 20190712
